FAERS Safety Report 7387823-4 (Version None)
Quarter: 2011Q1

REPORT INFORMATION
  Report Type: 
  Country: None (occurrence: None)
  Receive Date: 20110331
  Receipt Date: 20110329
  Transmission Date: 20110831
  Serious: Yes (Hospitalization)
  Sender: FDA-Public Use
  Company Number: FR-MERCK-1103FRA00112

PATIENT
  Age: 65 Year
  Sex: Female

DRUGS (5)
  1. ASPIRIN LYSINE [Concomitant]
     Route: 048
  2. RAMIPRIL [Concomitant]
     Route: 048
     Dates: end: 20101101
  3. ATENOLOL [Concomitant]
     Route: 048
  4. JANUVIA [Suspect]
     Indication: TYPE 2 DIABETES MELLITUS
     Route: 048
     Dates: start: 20090301
  5. METFORMIN PAMOATE [Concomitant]
     Indication: TYPE 2 DIABETES MELLITUS
     Route: 048

REACTIONS (2)
  - RECTOSIGMOID CANCER [None]
  - HEPATIC CIRRHOSIS [None]
